FAERS Safety Report 12187085 (Version 1)
Quarter: 2016Q1

REPORT INFORMATION
  Report Type: Spontaneous
  Country: US (occurrence: None)
  Receive Date: 20160316
  Receipt Date: 20160316
  Transmission Date: 20160526
  Serious: No
  Sender: FDA-Public Use
  Company Number: None

PATIENT
  Age: 43 Year
  Sex: Female
  Weight: 63.5 kg

DRUGS (4)
  1. MULIT VITAMIN [Concomitant]
  2. LEVAQUIN [Suspect]
     Active Substance: LEVOFLOXACIN
     Indication: STREPTOCOCCAL INFECTION
     Dosage: 1 PILL ONCE DAILY TAKEN BY MOUTH
     Route: 048
     Dates: start: 20160229, end: 20160304
  3. CREST PRO-HEALTH CLINICAL [Concomitant]
     Active Substance: CETYLPYRIDINIUM CHLORIDE
  4. NYSTATIN. [Concomitant]
     Active Substance: NYSTATIN

REACTIONS (7)
  - Salivary gland enlargement [None]
  - Influenza like illness [None]
  - Abdominal distension [None]
  - Nausea [None]
  - Tongue coated [None]
  - Oral candidiasis [None]
  - Pain [None]

NARRATIVE: CASE EVENT DATE: 20160308
